FAERS Safety Report 5418730-1 (Version None)
Quarter: 2007Q3

REPORT INFORMATION
  Report Type: 
  Country: None (occurrence: None)
  Receive Date: 20070817
  Receipt Date: 20070807
  Transmission Date: 20080115
  Serious: Yes (Disabling, Other)
  Sender: FDA-Public Use
  Company Number: JP-PFIZER INC-2007045428

PATIENT
  Sex: Female

DRUGS (31)
  1. CEFPODOXIME PROXETIL [Suspect]
     Indication: INFLUENZA
     Route: 048
  2. CEFPODOXIME PROXETIL [Suspect]
     Indication: NASOPHARYNGITIS
     Route: 048
  3. CEFPODOXIME PROXETIL [Suspect]
     Indication: DRUG ERUPTION
  4. LOXOPROFEN SODIUM [Concomitant]
     Route: 048
  5. LOXOPROFEN SODIUM [Concomitant]
     Route: 048
  6. MEDICON [Concomitant]
     Route: 048
  7. MEDICON [Concomitant]
     Route: 048
  8. AMBROXOL HYDROCHLORIDE [Concomitant]
     Dosage: TEXT:3 DF
     Route: 048
  9. ALESION [Concomitant]
     Dosage: TEXT:1 DF
     Route: 048
  10. ISODINE [Concomitant]
     Dosage: TEXT:ON PHYSICIAN'S ORDERS
  11. SYMMETREL [Concomitant]
     Route: 048
  12. ALL OTHER THERAPEUTIC PRODUCTS [Concomitant]
     Dosage: TEXT:1 DF
     Route: 042
     Dates: start: 20030329, end: 20030329
  13. ALL OTHER THERAPEUTIC PRODUCTS [Concomitant]
     Dosage: TEXT:1 DF
     Route: 042
     Dates: start: 20030331, end: 20030331
  14. METOCLOPRAMIDE [Concomitant]
     Route: 042
     Dates: start: 20030329, end: 20030329
  15. METOCLOPRAMIDE [Concomitant]
     Route: 042
     Dates: start: 20030331, end: 20030331
  16. METOCLOPRAMIDE [Concomitant]
     Route: 042
     Dates: start: 20030407, end: 20030407
  17. SOLCOSERYL [Concomitant]
     Dosage: TEXT:1 DF
     Route: 042
     Dates: start: 20030329, end: 20030329
  18. SOLCOSERYL [Concomitant]
     Dosage: TEXT:1 DF
     Route: 042
     Dates: start: 20030331, end: 20030331
  19. SOLCOSERYL [Concomitant]
     Dosage: TEXT:1 DF
     Route: 042
     Dates: start: 20030407, end: 20030407
  20. ALL OTHER THERAPEUTIC PRODUCTS [Concomitant]
     Route: 042
     Dates: start: 20030329, end: 20030329
  21. ALL OTHER THERAPEUTIC PRODUCTS [Concomitant]
     Route: 042
     Dates: start: 20030331, end: 20030331
  22. ALL OTHER THERAPEUTIC PRODUCTS [Concomitant]
     Route: 042
     Dates: start: 20030407, end: 20030407
  23. VISCORIN [Concomitant]
     Route: 042
     Dates: start: 20030329, end: 20030329
  24. VISCORIN [Concomitant]
     Route: 042
     Dates: start: 20030331, end: 20030331
  25. VISCORIN [Concomitant]
     Route: 042
     Dates: start: 20030407, end: 20030407
  26. ALL OTHER THERAPEUTIC PRODUCTS [Concomitant]
     Dosage: TEXT:1 DF
     Route: 042
     Dates: start: 20030407, end: 20030407
  27. ALL OTHER THERAPEUTIC PRODUCTS [Concomitant]
     Route: 048
  28. ALL OTHER THERAPEUTIC PRODUCTS [Concomitant]
     Route: 048
  29. AMIKACIN [Concomitant]
     Dosage: TEXT:1 DF
     Route: 030
     Dates: start: 20030329, end: 20030329
  30. METILON [Concomitant]
     Dosage: TEXT:1 DF
     Route: 030
     Dates: start: 20030329, end: 20030329
  31. METOCLOPRAMIDE [Concomitant]
     Dosage: TEXT:2 DF
     Route: 048
     Dates: start: 20030407

REACTIONS (2)
  - TOXIC EPIDERMAL NECROLYSIS [None]
  - VISUAL ACUITY REDUCED [None]
